FAERS Safety Report 5498407-7 (Version None)
Quarter: 2007Q4

REPORT INFORMATION
  Report Type: 
  Country: None (occurrence: None)
  Receive Date: 20071024
  Receipt Date: 20071015
  Transmission Date: 20080405
  Serious: Yes (Other)
  Sender: FDA-Public Use
  Company Number: 2007SP020893

PATIENT
  Age: 48 Year
  Sex: Female

DRUGS (2)
  1. PEG-INTRON [Suspect]
     Indication: HEPATITIS C
     Dates: start: 20070910
  2. REBETOL [Suspect]
     Indication: HEPATITIS C
     Dosage: PO
     Route: 048
     Dates: start: 20070910

REACTIONS (8)
  - DEHYDRATION [None]
  - DIARRHOEA [None]
  - DIZZINESS [None]
  - HALLUCINATION, AUDITORY [None]
  - INFLUENZA LIKE ILLNESS [None]
  - MIGRAINE [None]
  - PANIC ATTACK [None]
  - SLEEP DISORDER [None]
